FAERS Safety Report 7450697-7 (Version None)
Quarter: 2011Q2

REPORT INFORMATION
  Report Type: 
  Country: None (occurrence: None)
  Receive Date: 20110429
  Receipt Date: 20110429
  Transmission Date: 20111010
  Serious: No
  Sender: FDA-Public Use
  Company Number: None

PATIENT
  Age: 66 Year
  Sex: Female
  Weight: 70.3075 kg

DRUGS (1)
  1. VESICARE [Suspect]
     Indication: POLLAKIURIA
     Dosage: 10MG 1 A DAY
     Dates: start: 20110217, end: 20110320

REACTIONS (3)
  - VISION BLURRED [None]
  - DRY MOUTH [None]
  - CONSTIPATION [None]
